FAERS Safety Report 4588468-1 (Version None)
Quarter: 2005Q1

REPORT INFORMATION
  Report Type: 
  Country: None (occurrence: None)
  Receive Date: 20050222
  Receipt Date: 20050209
  Transmission Date: 20050727
  Serious: Yes (Hospitalization, Other)
  Sender: FDA-Public Use
  Company Number: GB-BRISTOL-MYERS SQUIBB COMPANY-12855300

PATIENT
  Age: 39 Year
  Sex: Male

DRUGS (5)
  1. STAVUDINE [Suspect]
  2. CLOZARIL [Suspect]
     Indication: SCHIZOPHRENIA
     Dosage: 01-JUN-2004 TEMPORARILY WITH-HELD THEN RESTARTED.
     Route: 048
     Dates: start: 20010501
  3. LAMIVUDINE [Suspect]
  4. SAQUINAVIR [Suspect]
  5. VALPROATE SODIUM [Concomitant]
     Indication: AFFECTIVE DISORDER
     Route: 048
     Dates: start: 20020401, end: 20040106

REACTIONS (8)
  - FEELING ABNORMAL [None]
  - HAEMOGLOBIN DECREASED [None]
  - MEAN CELL VOLUME INCREASED [None]
  - NEUTROPHIL COUNT DECREASED [None]
  - PLATELET COUNT DECREASED [None]
  - PNEUMONIA [None]
  - PYREXIA [None]
  - WHITE BLOOD CELL COUNT DECREASED [None]
